FAERS Safety Report 14139165 (Version 3)
Quarter: 2018Q1

REPORT INFORMATION
  Report Type: Spontaneous
  Country: DE (occurrence: DE)
  Receive Date: 20171027
  Receipt Date: 20180324
  Transmission Date: 20180508
  Serious: Yes (Other)
  Sender: FDA-Public Use
  Company Number: DE-ROCHE-2014160

PATIENT
  Age: 65 Year
  Sex: Female

DRUGS (12)
  1. LUCENTIS [Suspect]
     Active Substance: RANIBIZUMAB
     Dosage: (RIGHT EYE)?10 MG/ML
     Route: 031
     Dates: start: 20170530
  2. LUCENTIS [Suspect]
     Active Substance: RANIBIZUMAB
     Dosage: (RIGHT EYE)?10 MG/ML
     Route: 031
     Dates: start: 20170425
  3. LUCENTIS [Suspect]
     Active Substance: RANIBIZUMAB
     Dosage: (RIGHT EYE)?10 MG/ML
     Route: 031
     Dates: start: 20170214
  4. LUCENTIS [Suspect]
     Active Substance: RANIBIZUMAB
     Dosage: (RIGHT EYE)?10 MG/ML
     Route: 031
     Dates: start: 20170913
  5. ENALAPRIL [Concomitant]
     Active Substance: ENALAPRIL
     Indication: HYPERTENSION
     Dosage: UNK
     Route: 005
  6. LUCENTIS [Suspect]
     Active Substance: RANIBIZUMAB
     Dosage: (RIGHT EYE)?10 MG/ML
     Route: 031
     Dates: start: 20170314
  7. LUCENTIS [Suspect]
     Active Substance: RANIBIZUMAB
     Dosage: (RIGHT EYE)?10 MG/ML
     Route: 031
     Dates: start: 20170704
  8. BERLTHYROX [Concomitant]
     Indication: HYPOTHYROIDISM
     Dosage: UNK
     Route: 065
  9. LUCENTIS [Suspect]
     Active Substance: RANIBIZUMAB
     Dosage: (RIGHT EYE)?10 MG/ML
     Route: 031
     Dates: start: 20170103
  10. LUCENTIS [Suspect]
     Active Substance: RANIBIZUMAB
     Indication: NEOVASCULAR AGE-RELATED MACULAR DEGENERATION
     Dosage: (LEFT EYE)?10 MG/ML
     Route: 031
     Dates: start: 20161219, end: 20170221
  11. LUCENTIS [Suspect]
     Active Substance: RANIBIZUMAB
     Dosage: (RIGHT EYE)?10 MG/ML
     Route: 031
     Dates: start: 20170117
  12. LUCENTIS [Suspect]
     Active Substance: RANIBIZUMAB
     Dosage: (LEFT EYE)?10 MG/ML
     Route: 031
     Dates: start: 20170221

REACTIONS (3)
  - Retinal cyst [Recovering/Resolving]
  - Visual acuity reduced [Not Recovered/Not Resolved]
  - Multiple use of single-use product [Unknown]

NARRATIVE: CASE EVENT DATE: 20170419
